FAERS Safety Report 22588012 (Version 1)
Quarter: 2023Q2

REPORT INFORMATION
  Report Type: Spontaneous
  Country: AU (occurrence: AU)
  Receive Date: 20230612
  Receipt Date: 20230612
  Transmission Date: 20230722
  Serious: Yes (Other)
  Sender: FDA-Public Use
  Company Number: AU-BAXTER-2023BAX023349

PATIENT
  Sex: Female

DRUGS (12)
  1. DOXORUBICIN [Suspect]
     Active Substance: DOXORUBICIN
     Indication: Mantle cell lymphoma
     Dosage: IN 2013, AS APART OF R-CHOP AND R-MAINTAINANCE WITH COMPLETE RESPONSE (CR)
     Route: 065
  2. CYCLOPHOSPHAMIDE [Suspect]
     Active Substance: CYCLOPHOSPHAMIDE
     Indication: Mantle cell lymphoma
     Dosage: IN 2013, AS APART OF R-CHOP AND R-MAINTAINANCE WITH COMPLETE RESPONSE (CR)
     Route: 065
  3. RITUXIMAB [Suspect]
     Active Substance: RITUXIMAB
     Indication: Mantle cell lymphoma
     Dosage: IN 2013, AS A PART OF R-CHOP AND R-MAINTAINANCE WITH COMPLETE RESPONSE (CR)
     Route: 065
  4. PREDNISONE [Suspect]
     Active Substance: PREDNISONE
     Indication: Mantle cell lymphoma
     Dosage: IN 2013, AS A PART OF R-CHOP AND R-MAINTAINANCE WITH COMPLETE RESPONSE (CR)
     Route: 065
  5. VINCRISTINE [Suspect]
     Active Substance: VINCRISTINE
     Indication: Mantle cell lymphoma
     Dosage: IN 2013, AS A PART OF R-CHOP AND R-MAINTAINANCE WITH COMPLETE RESPONSE (CR)
     Route: 065
  6. ETOPOSIDE [Suspect]
     Active Substance: ETOPOSIDE
     Indication: Mantle cell lymphoma
     Dosage: IN 2014, AS A PART OF ESHAC X 3 WITH COMPLETE RESPOSE (CR)
     Route: 065
  7. METHYLPREDNISOLONE [Suspect]
     Active Substance: METHYLPREDNISOLONE
     Indication: Mantle cell lymphoma
     Dosage: IN 2014, AS A PART OF ESHAC X 3 WITH COMPLETE RESPOSE (CR)
     Route: 065
  8. CYTARABINE [Suspect]
     Active Substance: CYTARABINE
     Indication: Mantle cell lymphoma
     Dosage: IN 2014, AS A PART OF ESHAC X 3 WITH COMPLETE RESPOSE (CR)
     Route: 065
  9. CISPLATIN [Suspect]
     Active Substance: CISPLATIN
     Indication: Mantle cell lymphoma
     Dosage: IN 2014, AS A PART OF ESHAC X 3 WITH COMPLETE RESPOSE (CR)
     Route: 065
  10. IBRUTINIB [Suspect]
     Active Substance: IBRUTINIB
     Indication: Mantle cell lymphoma
     Dosage: FROM 2015 TO PRESENT, WITH COMPLETE RESPONSE (CR)
     Route: 065
  11. IBRUTINIB [Suspect]
     Active Substance: IBRUTINIB
     Dosage: IN DEC-2022, WITH PARTIAL RESPONSE(PR)
     Route: 065
  12. VENETOCLAX [Suspect]
     Active Substance: VENETOCLAX
     Indication: Mantle cell lymphoma
     Dosage: IN DEC-2022, WITH PARTIAL RESPONSE (PR) AND STOPPED THERAPY
     Route: 065

REACTIONS (6)
  - Therapeutic product effect prolonged [Unknown]
  - Mantle cell lymphoma recurrent [Unknown]
  - Abdominal mass [Unknown]
  - Therapy partial responder [Unknown]
  - Disease progression [Unknown]
  - Diarrhoea [Unknown]
